FAERS Safety Report 5009201-5 (Version None)
Quarter: 2006Q2

REPORT INFORMATION
  Report Type: 
  Country: None (occurrence: None)
  Receive Date: 20060519
  Receipt Date: 20060516
  Transmission Date: 20061013
  Serious: Yes (Other)
  Sender: FDA-Public Use
  Company Number: 2005-03-1454

PATIENT
  Age: 68 Year
  Sex: Male

DRUGS (7)
  1. BETAMETHASONE DIPROPIONATE [Suspect]
     Dosage: 4 DROPS/D* OPHTHALMIC
     Route: 047
     Dates: start: 20031023, end: 20040301
  2. BETAMETHASONE DIPROPIONATE [Suspect]
     Dosage: 4 DROPS/D* OPHTHALMIC
     Route: 047
     Dates: start: 20040529, end: 20040602
  3. DICLOFENAC SODIUM [Concomitant]
  4. LEVOFLOXACIN [Concomitant]
  5. LEVOFLOXACIN [Concomitant]
  6. MYDRIN P [Concomitant]
  7. MYDRIN P [Concomitant]

REACTIONS (6)
  - CORNEAL OPACITY [None]
  - CORNEAL PERFORATION [None]
  - CORNEAL TRANSPLANT [None]
  - IRIDOCELE [None]
  - POST PROCEDURAL COMPLICATION [None]
  - ULCERATIVE KERATITIS [None]
